FAERS Safety Report 24380139 (Version 1)
Quarter: 2024Q3

REPORT INFORMATION
  Report Type: Spontaneous
  Country: US (occurrence: US)
  Receive Date: 20240930
  Receipt Date: 20240930
  Transmission Date: 20241017
  Serious: No
  Sender: CALLIDITAS THERAPEUTICS
  Company Number: US-Calliditas-2024CAL01268

PATIENT
  Age: 17 Year
  Sex: Male
  Weight: 132 kg

DRUGS (8)
  1. TARPEYO [Suspect]
     Active Substance: BUDESONIDE
     Indication: IgA nephropathy
     Route: 048
     Dates: start: 20240417
  2. VITAMIN D3 [Concomitant]
     Active Substance: CHOLECALCIFEROL
  3. DESMOPRESSIN [Concomitant]
     Active Substance: DESMOPRESSIN
  4. FISH OIL [Concomitant]
     Active Substance: FISH OIL
  5. FAMOTIDINE [Concomitant]
     Active Substance: FAMOTIDINE
  6. LISINOPRIL [Concomitant]
     Active Substance: LISINOPRIL
  7. LOSARTAN [Concomitant]
     Active Substance: LOSARTAN\LOSARTAN POTASSIUM
  8. MYCOPHENOLATE MOFETIL [Concomitant]
     Active Substance: MYCOPHENOLATE MOFETIL

REACTIONS (4)
  - Product dose omission issue [Unknown]
  - Off label use [Unknown]
  - Infection [Unknown]
  - Chromaturia [Unknown]
